FAERS Safety Report 12411781 (Version 2)
Quarter: 2016Q2

REPORT INFORMATION
  Report Type: Report from Study
  Country: US (occurrence: US)
  Receive Date: 20160527
  Receipt Date: 20160531
  Transmission Date: 20160815
  Serious: Yes (Death, Hospitalization)
  Sender: FDA-Public Use
  Company Number: US-JNJFOC-20160525070

PATIENT
  Age: 58 Year
  Sex: Male
  Weight: 99.79 kg

DRUGS (6)
  1. ENALAPRIL [Concomitant]
     Active Substance: ENALAPRIL
     Indication: RENAL DISORDER
     Route: 065
  2. IRON [Concomitant]
     Active Substance: IRON
     Indication: BLOOD IRON DECREASED
     Route: 065
     Dates: start: 201602
  3. INSULIN [Concomitant]
     Active Substance: INSULIN NOS
     Indication: TYPE 2 DIABETES MELLITUS
     Route: 065
  4. INVOKANA [Suspect]
     Active Substance: CANAGLIFLOZIN
     Indication: TYPE 2 DIABETES MELLITUS
     Route: 048
     Dates: start: 2015, end: 201603
  5. METFORMIN [Concomitant]
     Active Substance: METFORMIN HYDROCHLORIDE
     Indication: TYPE 2 DIABETES MELLITUS
     Route: 065
  6. ASPIRIN. [Concomitant]
     Active Substance: ASPIRIN
     Route: 065

REACTIONS (5)
  - Blood glucose decreased [Unknown]
  - Weight decreased [Unknown]
  - Colon cancer [Fatal]
  - Adverse event [Unknown]
  - Fluid retention [Unknown]

NARRATIVE: CASE EVENT DATE: 201603
